FAERS Safety Report 5054476-X (Version None)
Quarter: 2006Q3

REPORT INFORMATION
  Report Type: 
  Country: None (occurrence: None)
  Receive Date: 20060713
  Receipt Date: 20060623
  Transmission Date: 20061208
  Serious: Yes (Death, Hospitalization)
  Sender: FDA-Public Use
  Company Number: 163-21880-06040854

PATIENT
  Age: 75 Year
  Sex: Male

DRUGS (2)
  1. REVLIMID [Suspect]
     Indication: MYELODYSPLASTIC SYNDROME
     Dosage: 1 IN 1 D, ORAL; QD, ORAL
     Route: 048
     Dates: start: 20060331, end: 20060412
  2. REVLIMID [Suspect]
     Indication: MYELODYSPLASTIC SYNDROME
     Dosage: 1 IN 1 D, ORAL; QD, ORAL
     Route: 048
     Dates: start: 20060425

REACTIONS (3)
  - FULL BLOOD COUNT DECREASED [None]
  - NAUSEA [None]
  - VOMITING [None]
